FAERS Safety Report 4944486-2 (Version None)
Quarter: 2006Q1

REPORT INFORMATION
  Report Type: 
  Country: None (occurrence: None)
  Receive Date: 20060315
  Receipt Date: 20060306
  Transmission Date: 20060701
  Serious: Yes (Life-Threatening, Hospitalization)
  Sender: FDA-Public Use
  Company Number: US-AVENTIS-200612126US

PATIENT
  Age: 82 Year
  Sex: Female

DRUGS (12)
  1. KETEK [Suspect]
     Route: 048
     Dates: start: 20060220
  2. SPIRIVA [Concomitant]
     Dosage: DOSE: UNKNOWN
  3. NASONEX [Concomitant]
     Dosage: DOSE: UNKNOWN
  4. FORADIL [Concomitant]
     Dosage: DOSE: UNKNOWN
  5. ALBUTEROL [Concomitant]
     Dosage: DOSE: UNKNOWN
  6. PRILOSEC [Concomitant]
     Dosage: DOSE: UNKNOWN
  7. AVAPRO [Concomitant]
     Dosage: DOSE: UNKNOWN
  8. TOPROL-XL [Concomitant]
     Dosage: DOSE: UNKNOWN
  9. AMITRIPTYLINE HCL [Concomitant]
     Dosage: DOSE: UNKNOWN
  10. PHENERGAN [Concomitant]
     Dosage: DOSE: UNKNOWN
  11. TEMAZEPAM [Concomitant]
     Dosage: DOSE: UNKNOWN
  12. DITROPAN [Concomitant]
     Dosage: DOSE: UNKNOWN

REACTIONS (2)
  - RENAL FAILURE [None]
  - RHABDOMYOLYSIS [None]
